FAERS Safety Report 5055908-3 (Version None)
Quarter: 2006Q3

REPORT INFORMATION
  Report Type: 
  Country: None (occurrence: None)
  Receive Date: 20060717
  Receipt Date: 20060704
  Transmission Date: 20061208
  Serious: Yes (Life-Threatening, Hospitalization, Other)
  Sender: FDA-Public Use
  Company Number: 2006069697

PATIENT
  Age: 89 Year
  Sex: Male
  Weight: 35.7 kg

DRUGS (3)
  1. CLINDAMYCIN PHOSPHATE [Suspect]
     Indication: PNEUMONIA
     Dosage: 1200 MG (600 MG, 2 IN 1 D), INTRAVENOUS
     Route: 042
     Dates: start: 20060516, end: 20060522
  2. CEFTAZIDIME [Suspect]
     Indication: PNEUMONIA
     Dosage: 2 GRAM (1 GRAM, 2 IN 1 D), INTRAVENOUS
     Route: 042
     Dates: start: 20060516, end: 20060522
  3. ELASPOL (SIVELESTAT) [Suspect]
     Indication: PNEUMONIA
     Dosage: 200 MG (INTERVAL:  CONTINUOUSLY), INTRAVENOUS
     Route: 042
     Dates: start: 20060516, end: 20060522

REACTIONS (8)
  - ALANINE AMINOTRANSFERASE INCREASED [None]
  - ASPARTATE AMINOTRANSFERASE INCREASED [None]
  - DRUG ERUPTION [None]
  - HEPATIC FUNCTION ABNORMAL [None]
  - PLATELET COUNT DECREASED [None]
  - PYREXIA [None]
  - RENAL IMPAIRMENT [None]
  - TOXIC SKIN ERUPTION [None]
